FAERS Safety Report 5598742-8 (Version None)
Quarter: 2008Q1

REPORT INFORMATION
  Report Type: 
  Country: None (occurrence: None)
  Receive Date: 20080117
  Receipt Date: 20080111
  Transmission Date: 20080703
  Serious: Yes (Death)
  Sender: FDA-Public Use
  Company Number: CLOF-1000039

PATIENT
  Sex: Male

DRUGS (2)
  1. CLOFARABINE (CLOFARABINE) SOLUTION FOR INFUSION [Suspect]
     Indication: ACUTE MYELOID LEUKAEMIA
  2. IDARUBICIN (IDARUBICIN) UNKNOWN [Suspect]
     Indication: ACUTE MYELOID LEUKAEMIA

REACTIONS (1)
  - DEATH [None]
